FAERS Safety Report 8402008-8 (Version None)
Quarter: 2012Q2

REPORT INFORMATION
  Report Type: 
  Country: None (occurrence: None)
  Receive Date: 20120601
  Receipt Date: 20120529
  Transmission Date: 20120825
  Serious: Yes (Other)
  Sender: FDA-Public Use
  Company Number: US-PFIZER INC-2012100601

PATIENT
  Sex: Male
  Weight: 73.016 kg

DRUGS (3)
  1. ATORVASTATIN CALCIUM [Suspect]
     Indication: BLOOD CHOLESTEROL INCREASED
     Dosage: 80 MG, 1X/DAY
     Route: 048
  2. LIPITOR [Suspect]
     Indication: BLOOD CHOLESTEROL INCREASED
     Dosage: 80 MG, 1X/DAY
     Route: 048
     Dates: start: 20060329
  3. PLAVIX [Concomitant]
     Dosage: UNK

REACTIONS (9)
  - EPIDIDYMITIS [None]
  - PAIN [None]
  - ABDOMINAL DISTENSION [None]
  - KIDNEY INFECTION [None]
  - FEELING ABNORMAL [None]
  - CYSTITIS [None]
  - MUSCLE SPASMS [None]
  - RENAL DISORDER [None]
  - PAROSMIA [None]
